FAERS Safety Report 20737911 (Version 1)
Quarter: 2022Q2

REPORT INFORMATION
  Report Type: Report from Study
  Country: US (occurrence: US)
  Receive Date: 20220422
  Receipt Date: 20220422
  Transmission Date: 20220721
  Serious: No
  Sender: FDA-Public Use
  Company Number: US-ONCOPEPPR-00916

PATIENT
  Sex: Male

DRUGS (3)
  1. PEPAXTO [Suspect]
     Active Substance: MELPHALAN FLUFENAMIDE
     Indication: Product used for unknown indication
     Dosage: TIME INTERVAL: CYCLICAL
     Dates: start: 202106
  2. 1325695 (GLOBALC3Sep21): dex [Concomitant]
     Dosage: TIME INTERVAL: CYCLICAL
     Dates: start: 202106
  3. 1260720 (GLOBALC3Sep21): pegfilgrastim [Concomitant]
     Indication: Prophylaxis
     Dosage: TIME INTERVAL: CYCLICAL; DAY 2 OF EACH CYCLE

REACTIONS (1)
  - Platelet count decreased [Recovering/Resolving]
